FAERS Safety Report 18621259 (Version 1)
Quarter: 2020Q4

REPORT INFORMATION
  Report Type: Report from Study
  Country: US (occurrence: US)
  Receive Date: 20201215
  Receipt Date: 20201215
  Transmission Date: 20210114
  Serious: Yes (Other)
  Sender: FDA-Public Use
  Company Number: US-JAZZ-2020-US-009547

PATIENT
  Sex: Female
  Weight: 43.54 kg

DRUGS (13)
  1. XYREM [Suspect]
     Active Substance: SODIUM OXYBATE
     Dosage: 3.75 GRAM, BID
     Route: 048
     Dates: start: 2020, end: 2020
  2. XYREM [Suspect]
     Active Substance: SODIUM OXYBATE
     Indication: NARCOLEPSY
     Dosage: 2.25 GRAM, BID
     Route: 048
     Dates: start: 202007, end: 2020
  3. XYREM [Suspect]
     Active Substance: SODIUM OXYBATE
     Dosage: 3.75 GRAM, BID
     Route: 048
     Dates: start: 2020, end: 2020
  4. PROZAC [Suspect]
     Active Substance: FLUOXETINE HYDROCHLORIDE
     Indication: PRODUCT USED FOR UNKNOWN INDICATION
  5. EFFEXOR [Concomitant]
     Active Substance: VENLAFAXINE HYDROCHLORIDE
  6. XYREM [Suspect]
     Active Substance: SODIUM OXYBATE
     Dosage: 3 GRAM, BID
     Route: 048
     Dates: start: 2020, end: 2020
  7. MOTRIN [Concomitant]
     Active Substance: IBUPROFEN
  8. XYREM [Suspect]
     Active Substance: SODIUM OXYBATE
     Indication: CATAPLEXY
     Dosage: 3 GRAM, BID
     Route: 048
     Dates: start: 2020, end: 2020
  9. XYREM [Suspect]
     Active Substance: SODIUM OXYBATE
     Dosage: 4.5 GRAM, BID
     Route: 048
     Dates: start: 2020, end: 2020
  10. PROVIGIL [Concomitant]
     Active Substance: MODAFINIL
  11. LAMICTAL [Suspect]
     Active Substance: LAMOTRIGINE
     Indication: PRODUCT USED FOR UNKNOWN INDICATION
  12. LAMOTRIGINE. [Concomitant]
     Active Substance: LAMOTRIGINE
  13. XYREM [Suspect]
     Active Substance: SODIUM OXYBATE
     Dosage: 4.5 GRAM, BID
     Route: 048
     Dates: start: 20200828, end: 2020

REACTIONS (11)
  - Tremor [Unknown]
  - Condition aggravated [Recovering/Resolving]
  - Retching [Unknown]
  - Somnambulism [Not Recovered/Not Resolved]
  - Underweight [Not Recovered/Not Resolved]
  - Taste disorder [Not Recovered/Not Resolved]
  - Abnormal sleep-related event [Unknown]
  - Anxiety [Not Recovered/Not Resolved]
  - Abdominal migraine [Recovering/Resolving]
  - Drug ineffective [Unknown]
  - Product storage error [Unknown]

NARRATIVE: CASE EVENT DATE: 2020
